FAERS Safety Report 17530726 (Version 1)
Quarter: 2020Q1

REPORT INFORMATION
  Report Type: Spontaneous
  Country: GB (occurrence: GB)
  Receive Date: 20200311
  Receipt Date: 20200311
  Transmission Date: 20200409
  Serious: Yes (Other)
  Sender: FDA-Public Use
  Company Number: GB-TAKEDA-2020TUS013601

PATIENT
  Age: 25 Year
  Sex: Female

DRUGS (2)
  1. BRINTELLIX [Suspect]
     Active Substance: VORTIOXETINE HYDROBROMIDE
     Indication: EATING DISORDER
  2. BRINTELLIX [Suspect]
     Active Substance: VORTIOXETINE HYDROBROMIDE
     Indication: DEPRESSED MOOD
     Dosage: 20 MILLIGRAM, QD
     Route: 065

REACTIONS (4)
  - Product label issue [Unknown]
  - Rectal haemorrhage [Unknown]
  - Intentional self-injury [Unknown]
  - Haemoglobin decreased [Unknown]
